FAERS Safety Report 8534989-6 (Version None)
Quarter: 2012Q3

REPORT INFORMATION
  Report Type: 
  Country: None (occurrence: None)
  Receive Date: 20120724
  Receipt Date: 20120719
  Transmission Date: 20120928
  Serious: Yes (Other)
  Sender: FDA-Public Use
  Company Number: US-PFIZER INC-2012175180

PATIENT

DRUGS (1)
  1. DEPO-SUBQ PROVERA 104 [Suspect]
     Dosage: UNK
     Route: 058

REACTIONS (1)
  - UPPER RESPIRATORY TRACT INFECTION [None]
